FAERS Safety Report 8618520-2 (Version None)
Quarter: 2012Q3

REPORT INFORMATION
  Report Type: 
  Country: None (occurrence: None)
  Receive Date: 20120824
  Receipt Date: 20120813
  Transmission Date: 20120928
  Serious: Yes (Other)
  Sender: FDA-Public Use
  Company Number: US-ACCORD-014468

PATIENT
  Sex: Female

DRUGS (4)
  1. ADRIAMYCIN PFS [Suspect]
     Indication: BREAST CANCER STAGE I
  2. PACLITAXEL [Suspect]
     Indication: BREAST CANCER STAGE I
  3. FLUOROURACIL [Suspect]
     Indication: BREAST CANCER STAGE I
  4. CYTOXAN [Suspect]
     Indication: BREAST CANCER STAGE I

REACTIONS (2)
  - MATERNAL EXPOSURE DURING PREGNANCY [None]
  - UTERINE CONTRACTIONS DURING PREGNANCY [None]
